FAERS Safety Report 16003610 (Version 4)
Quarter: 2019Q2

REPORT INFORMATION
  Report Type: Spontaneous
  Country: BR (occurrence: BR)
  Receive Date: 20190226
  Receipt Date: 20190430
  Transmission Date: 20190711
  Serious: Yes (Other)
  Sender: FDA-Public Use
  Company Number: BR-TEVA-2019-BR-1013327

PATIENT
  Age: 59 Year
  Sex: Female
  Weight: 60 kg

DRUGS (4)
  1. EZETIMIBE. [Concomitant]
     Active Substance: EZETIMIBE
     Indication: BLOOD CHOLESTEROL ABNORMAL
     Dosage: 1 YEAR AND A HALF AGO
     Route: 048
  2. MIOCALVEN 500 MG [Concomitant]
     Indication: OSTEOPOROSIS
     Dosage: 1 SACHET PER DAY, START DATE ABOUNT 13 YEARS AGO
     Route: 048
     Dates: start: 2006
  3. LIVIAL [Concomitant]
     Active Substance: TIBOLONE
     Indication: HORMONE REPLACEMENT THERAPY
     Dosage: START DATE ABOUNT 13 YEARS AGO
     Route: 048
     Dates: start: 2006
  4. ACTONEL [Suspect]
     Active Substance: RISEDRONATE SODIUM
     Indication: OSTEOPOROSIS
     Dosage: OVER 14 YEARS AGO
     Route: 048
     Dates: end: 20181226

REACTIONS (6)
  - Root canal infection [Unknown]
  - Tooth fracture [Unknown]
  - Tooth extraction [Unknown]
  - Osteomyelitis [Unknown]
  - Bone loss [Unknown]
  - Osteopenia [Unknown]

NARRATIVE: CASE EVENT DATE: 2006
